FAERS Safety Report 6961525-8 (Version None)
Quarter: 2010Q3

REPORT INFORMATION
  Report Type: 
  Country: None (occurrence: None)
  Receive Date: 20100823
  Receipt Date: 20100609
  Transmission Date: 20110219
  Serious: No
  Sender: FDA-Public Use
  Company Number: 006515

PATIENT
  Sex: Male

DRUGS (1)
  1. CIMZIA [Suspect]
     Dosage: (DOSE SUBCUTANEOUS)
     Route: 058

REACTIONS (6)
  - ARTHRALGIA [None]
  - DECREASED APPETITE [None]
  - FACE OEDEMA [None]
  - FEELING ABNORMAL [None]
  - INITIAL INSOMNIA [None]
  - INSOMNIA [None]
